FAERS Safety Report 7041548-3 (Version None)
Quarter: 2010Q4

REPORT INFORMATION
  Report Type: 
  Country: None (occurrence: None)
  Receive Date: 20101013
  Receipt Date: 20100714
  Transmission Date: 20110411
  Serious: No
  Sender: FDA-Public Use
  Company Number: US-ASTRAZENECA-2010SE32915

PATIENT
  Age: 586 Month
  Sex: Male

DRUGS (2)
  1. SYMBICORT [Suspect]
     Indication: ASTHMA
     Dosage: 80/4.5, 1 PUFF
     Route: 055
  2. ALBUTEROL [Concomitant]
     Indication: ASTHMA

REACTIONS (4)
  - DIZZINESS [None]
  - HEADACHE [None]
  - INCORRECT PRODUCT STORAGE [None]
  - NAUSEA [None]
